FAERS Safety Report 14127402 (Version 1)
Quarter: 2017Q4

REPORT INFORMATION
  Report Type: Spontaneous
  Country: US (occurrence: US)
  Receive Date: 20171026
  Receipt Date: 20171026
  Transmission Date: 20180321
  Serious: No
  Sender: FDA-Public Use
  Company Number: US-TEVA-732168ACC

PATIENT
  Age: 65 Year
  Sex: Male
  Weight: 86.26 kg

DRUGS (4)
  1. OMEPRAZOLE. [Concomitant]
     Active Substance: OMEPRAZOLE
  2. MIRAPEX [Concomitant]
     Active Substance: PRAMIPEXOLE DIHYDROCHLORIDE
  3. CARBIDOPA AND LEVODOPA [Suspect]
     Active Substance: CARBIDOPA\LEVODOPA
     Dosage: 25MG/100MG
     Dates: start: 2016
  4. AZILECT [Concomitant]
     Active Substance: RASAGILINE MESYLATE

REACTIONS (1)
  - Drug ineffective [Unknown]
